FAERS Safety Report 8796502 (Version 2)
Quarter: 2012Q4

REPORT INFORMATION
  Report Type: 
  Country: US (occurrence: US)
  Receive Date: 20120920
  Receipt Date: 20121004
  Transmission Date: 20130627
  Serious: Yes (Death, Other)
  Sender: FDA-Public Use
  Company Number: PHEH2012US018175

PATIENT
  Sex: Male

DRUGS (2)
  1. GLEEVEC [Suspect]
     Indication: DERMATOFIBROSARCOMA
  2. GLEEVEC [Suspect]
     Indication: FIBROSARCOMA METASTATIC

REACTIONS (7)
  - Respiratory failure [Fatal]
  - Metastases to lung [Fatal]
  - Pulmonary embolism [Unknown]
  - Inferior vena caval occlusion [Unknown]
  - Pleural effusion [Unknown]
  - Dyspnoea [Unknown]
  - Tachycardia [Unknown]
